FAERS Safety Report 9269763 (Version 2)
Quarter: 2013Q4

REPORT INFORMATION
  Report Type: Spontaneous
  Country: TR (occurrence: TR)
  Receive Date: 20130503
  Receipt Date: 20131113
  Transmission Date: 20140711
  Serious: Yes (Other)
  Sender: FDA-Public Use
  Company Number: TR-AMGEN-TURSP2013030954

PATIENT
  Age: 54 Year
  Sex: Female

DRUGS (4)
  1. ENBREL [Suspect]
     Indication: RHEUMATOID ARTHRITIS
     Dosage: 50 MG, WEEKLY
     Route: 058
     Dates: start: 20130127, end: 201307
  2. PREDNOL                            /00049601/ [Concomitant]
     Indication: RHEUMATOID ARTHRITIS
     Dosage: 4 MG, 1X/DAY
     Route: 048
  3. INH [Concomitant]
     Dosage: UNK UNK, QD
     Route: 048
     Dates: start: 201301, end: 201303
  4. INH [Concomitant]
     Dosage: UNK

REACTIONS (17)
  - Nephrolithiasis [Not Recovered/Not Resolved]
  - Hypoaesthesia [Not Recovered/Not Resolved]
  - Feeling abnormal [Not Recovered/Not Resolved]
  - Hypersensitivity [Recovered/Resolved]
  - Hepatomegaly [Not Recovered/Not Resolved]
  - Solar lentigo [Not Recovered/Not Resolved]
  - Weight decreased [Not Recovered/Not Resolved]
  - Joint swelling [Not Recovered/Not Resolved]
  - C-reactive protein increased [Not Recovered/Not Resolved]
  - Decreased appetite [Recovered/Resolved]
  - Diarrhoea [Recovered/Resolved]
  - Muscle spasms [Unknown]
  - Generalised erythema [Recovered/Resolved]
  - Skin exfoliation [Recovered/Resolved]
  - Blood test abnormal [Recovered/Resolved]
  - Injection site erythema [Not Recovered/Not Resolved]
  - Injection site pruritus [Not Recovered/Not Resolved]
